FAERS Safety Report 7256228-9 (Version None)
Quarter: 2011Q1

REPORT INFORMATION
  Report Type: 
  Country: None (occurrence: None)
  Receive Date: 20110129
  Receipt Date: 20100519
  Transmission Date: 20110831
  Serious: No
  Sender: FDA-Public Use
  Company Number: US-ABBOTT-10P-163-0645919-00

PATIENT
  Sex: Female

DRUGS (2)
  1. NEURONTIN [Concomitant]
     Indication: PAIN
     Dosage: 300MG, 2 TID
     Route: 048
  2. HUMIRA [Suspect]
     Indication: RHEUMATOID ARTHRITIS

REACTIONS (2)
  - NODULE [None]
  - OEDEMA PERIPHERAL [None]
